FAERS Safety Report 21207996 (Version 1)
Quarter: 2022Q3

REPORT INFORMATION
  Report Type: Spontaneous
  Country: IL (occurrence: IL)
  Receive Date: 20220812
  Receipt Date: 20220812
  Transmission Date: 20221027
  Serious: Yes (Other)
  Sender: FDA-Public Use
  Company Number: IL-ARBOR PHARMACEUTICALS, LLC-IL-2022ARB001748

PATIENT
  Sex: Female

DRUGS (3)
  1. TRIPTODUR [Suspect]
     Active Substance: TRIPTORELIN
     Indication: Precocious puberty
     Dosage: UNK
     Route: 065
  2. TRIPTODUR [Suspect]
     Active Substance: TRIPTORELIN
  3. TRIPTODUR [Suspect]
     Active Substance: TRIPTORELIN

REACTIONS (1)
  - Optic nerve compression [Recovering/Resolving]
